FAERS Safety Report 19074599 (Version 1)
Quarter: 2021Q1

REPORT INFORMATION
  Report Type: Spontaneous
  Country: US (occurrence: US)
  Receive Date: 20210330
  Receipt Date: 20210330
  Transmission Date: 20210420
  Serious: No
  Sender: FDA-Public Use
  Company Number: US-ROCHE-2688394

PATIENT
  Age: 71 Year
  Sex: Male
  Weight: 65.83 kg

DRUGS (1)
  1. ERIVEDGE [Suspect]
     Active Substance: VISMODEGIB
     Indication: BASAL CELL NAEVUS SYNDROME
     Dosage: ONGOING: YES
     Route: 065

REACTIONS (2)
  - Weight decreased [Unknown]
  - Restless legs syndrome [Unknown]
